FAERS Safety Report 8581637-5 (Version None)
Quarter: 2012Q3

REPORT INFORMATION
  Report Type: 
  Country: None (occurrence: None)
  Receive Date: 20120801
  Receipt Date: 20120801
  Transmission Date: 20120928
  Serious: Yes (Other)
  Sender: FDA-Public Use
  Company Number: None

PATIENT
  Sex: Female
  Weight: 78.9259 kg

DRUGS (3)
  1. PRIFTIN [Suspect]
     Indication: LATENT TUBERCULOSIS
     Dosage: 900MG WEEKLY PO
     Route: 048
     Dates: start: 20120716, end: 20120716
  2. ISONIAZID [Suspect]
     Indication: LATENT TUBERCULOSIS
     Dosage: 900MG WEEKLY PO
     Route: 048
     Dates: start: 20120723, end: 20120723
  3. PROMETHAZINE [Concomitant]

REACTIONS (4)
  - ARTHRALGIA [None]
  - DYSPNOEA [None]
  - MYALGIA [None]
  - PYREXIA [None]
